FAERS Safety Report 11297382 (Version 1)
Quarter: 2015Q3

REPORT INFORMATION
  Report Type: Spontaneous
  Country: US (occurrence: US)
  Receive Date: 20150722
  Receipt Date: 20150722
  Transmission Date: 20151125
  Serious: No
  Sender: FDA-Public Use
  Company Number: US-ELI_LILLY_AND_COMPANY-US200804003472

PATIENT
  Sex: Female

DRUGS (8)
  1. PREVACID [Concomitant]
     Active Substance: LANSOPRAZOLE
     Indication: DYSPEPSIA
     Dosage: 30 MG, UNK
     Dates: start: 200707
  2. MINERAL SUPPLEMENTS [Concomitant]
     Active Substance: UNSPECIFIED INGREDIENT
     Indication: BLOOD PHOSPHORUS DECREASED
     Dosage: 500 MG, UNK
     Dates: start: 200804
  3. MAGNESIUM [Concomitant]
     Active Substance: MAGNESIUM
     Dosage: 400 MG, UNK
     Dates: start: 200804
  4. LEVOXYL [Concomitant]
     Active Substance: LEVOTHYROXINE SODIUM
     Indication: HYPOPITUITARISM
     Dosage: 125 MG, UNK
     Dates: start: 200210
  5. HUMATROPE [Suspect]
     Active Substance: SOMATROPIN
     Indication: HYPOPITUITARISM
     Dosage: 1 MG, UNK
     Dates: start: 2002, end: 20080508
  6. TUMS [Concomitant]
     Active Substance: CALCIUM CARBONATE
  7. PRENATE [Concomitant]
     Indication: PREGNANCY
     Dates: start: 200709
  8. VITAMIN B NOS [Concomitant]
     Active Substance: VITAMIN B
     Dosage: 100 MG, UNK
     Dates: start: 200805

REACTIONS (2)
  - Premature labour [Recovered/Resolved]
  - Exposure during pregnancy [Not Recovered/Not Resolved]

NARRATIVE: CASE EVENT DATE: 2008
